FAERS Safety Report 21064732 (Version 1)
Quarter: 2022Q3

REPORT INFORMATION
  Report Type: Spontaneous
  Country: JP (occurrence: JP)
  Receive Date: 20220711
  Receipt Date: 20220711
  Transmission Date: 20221027
  Serious: Yes (Death, Other)
  Sender: FDA-Public Use
  Company Number: JP-TAIHO-TT220217_P_1

PATIENT
  Age: 4 Decade

DRUGS (2)
  1. LONSURF [Suspect]
     Active Substance: TIPIRACIL HYDROCHLORIDE\TRIFLURIDINE
     Indication: Gastric cancer
     Dosage: DETAILS NOT REPORTED, 1 CYCLE
     Route: 048
  2. CYRAMZA [Concomitant]
     Active Substance: RAMUCIRUMAB
     Indication: Gastric cancer
     Dosage: DETAILS NOT REPORTED, 1 CYCLE
     Route: 041

REACTIONS (2)
  - Coronavirus infection [Recovering/Resolving]
  - Cerebral infarction [Fatal]
